FAERS Safety Report 17805673 (Version 1)
Quarter: 2020Q2

REPORT INFORMATION
  Report Type: Spontaneous
  Country: ES (occurrence: ES)
  Receive Date: 20200519
  Receipt Date: 20200519
  Transmission Date: 20200714
  Serious: Yes (Hospitalization)
  Sender: FDA-Public Use
  Company Number: ES-ACCORD-182373

PATIENT
  Age: 27 Year
  Sex: Male

DRUGS (4)
  1. IVERMECTIN. [Suspect]
     Active Substance: IVERMECTIN
     Indication: PROPHYLAXIS
     Dosage: 12 MG DU
     Route: 048
     Dates: start: 20200414, end: 20200414
  2. HYDROXYCHLOROQUINE [Suspect]
     Active Substance: HYDROXYCHLOROQUINE
     Indication: PNEUMONIA
     Route: 048
     Dates: start: 20200415, end: 20200419
  3. HYDROXYCHLOROQUINE [Suspect]
     Active Substance: HYDROXYCHLOROQUINE
     Indication: PNEUMONIA
     Dosage: 800 MG DAY (LOADING) FOLLOWED BY 400 MG DAY
     Route: 048
     Dates: start: 20200414, end: 20200414
  4. TOCILIZUMAB. [Suspect]
     Active Substance: TOCILIZUMAB
     Indication: CYTOKINE RELEASE SYNDROME
     Dosage: 600 MG
     Route: 042
     Dates: start: 20200414, end: 20200414

REACTIONS (1)
  - Hepatitis [Recovering/Resolving]

NARRATIVE: CASE EVENT DATE: 20200417
